FAERS Safety Report 7867986-4 (Version None)
Quarter: 2011Q4

REPORT INFORMATION
  Report Type: 
  Country: None (occurrence: None)
  Receive Date: 20111028
  Receipt Date: 20111025
  Transmission Date: 20120403
  Serious: Yes (Death, Hospitalization)
  Sender: FDA-Public Use
  Company Number: US-UCBSA-8046611

PATIENT
  Age: 40 Year
  Sex: Female
  Weight: 46.26 kg

DRUGS (15)
  1. PAXIL [Concomitant]
     Indication: DEPRESSION
     Dosage: DOSE FREQ.: DAILY
     Route: 048
     Dates: start: 20081223, end: 20090518
  2. CIMZIA [Suspect]
     Dosage: NUMBER OF DOSES:2
     Route: 058
     Dates: start: 20090303, end: 20090331
  3. FLAGYL [Concomitant]
     Indication: ANTIBIOTIC PROPHYLAXIS
     Dates: start: 20051205
  4. OXYCODONE HCL [Concomitant]
     Indication: PAIN
     Dosage: 5/500 MG
     Route: 048
     Dates: start: 20081223, end: 20090518
  5. PREDNISONE [Concomitant]
     Route: 048
     Dates: start: 20081223, end: 20090518
  6. FLAGYL [Concomitant]
     Route: 048
     Dates: start: 20090218, end: 20090518
  7. XANAX [Concomitant]
     Indication: ANXIETY
     Route: 048
     Dates: start: 20081223, end: 20090518
  8. PAXIL [Concomitant]
     Indication: ANXIETY
     Dosage: DOSE FREQ.: DAILY
     Route: 048
     Dates: start: 20081223, end: 20090518
  9. POTASSIUM [Concomitant]
     Indication: ELECTROLYTE IMBALANCE
     Dosage: DOSE FREQ.: DAILY
     Route: 048
     Dates: start: 20081223, end: 20090518
  10. PROTONIX [Concomitant]
     Indication: GASTROOESOPHAGEAL REFLUX DISEASE
     Dosage: DOSE FREQ.: DAILY
     Route: 048
     Dates: start: 20081223, end: 20090518
  11. ACETAMINOPHEN [Concomitant]
  12. PREDNISONE [Concomitant]
     Indication: IMMUNOSUPPRESSANT DRUG THERAPY
     Dates: start: 20081205
  13. CIMZIA [Suspect]
     Indication: CROHN'S DISEASE
     Dosage: NUMBER OF DOSES RECEIVED:1
     Route: 058
     Dates: start: 20090331, end: 20090518
  14. METHOTREXATE [Concomitant]
     Dates: start: 20090123
  15. METHOTREXATE [Concomitant]
     Dates: start: 20090129, end: 20090518

REACTIONS (6)
  - SUBCUTANEOUS EMPHYSEMA [None]
  - SHOCK [None]
  - RESPIRATORY FAILURE [None]
  - CONVULSION [None]
  - RENAL FAILURE [None]
  - SEPSIS [None]
